FAERS Safety Report 5326244-2 (Version None)
Quarter: 2007Q2

REPORT INFORMATION
  Report Type: 
  Country: None (occurrence: None)
  Receive Date: 20070509
  Receipt Date: 20070424
  Transmission Date: 20071010
  Serious: Yes (Death)
  Sender: FDA-Public Use
  Company Number: B0468926A

PATIENT
  Age: 17 Year
  Sex: Male

DRUGS (2)
  1. LAMOTRIGINE [Suspect]
  2. CARBAMAZEPINE [Suspect]

REACTIONS (1)
  - DRUG INTERACTION [None]
